FAERS Safety Report 6993630-4 (Version None)
Quarter: 2010Q3

REPORT INFORMATION
  Report Type: 
  Country: None (occurrence: None)
  Receive Date: 20100917
  Receipt Date: 20091124
  Transmission Date: 20110219
  Serious: Yes (Other)
  Sender: FDA-Public Use
  Company Number: US-ASTRAZENECA-2007UW03810

PATIENT
  Age: 14471 Day
  Sex: Female
  Weight: 84.8 kg

DRUGS (12)
  1. SEROQUEL [Suspect]
     Indication: SLEEP DISORDER
     Route: 048
     Dates: start: 20010101, end: 20070101
  2. SEROQUEL [Suspect]
     Indication: DEPRESSION
     Route: 048
     Dates: start: 20010101, end: 20070101
  3. SEROQUEL [Suspect]
     Indication: ANXIETY
     Route: 048
     Dates: start: 20010101, end: 20070101
  4. SEROQUEL [Suspect]
     Route: 048
     Dates: start: 20010501, end: 20070101
  5. SEROQUEL [Suspect]
     Route: 048
     Dates: start: 20010501, end: 20070101
  6. SEROQUEL [Suspect]
     Route: 048
     Dates: start: 20010501, end: 20070101
  7. SEROQUEL [Suspect]
     Route: 048
     Dates: start: 20060730, end: 20060101
  8. SEROQUEL [Suspect]
     Route: 048
     Dates: start: 20060730, end: 20060101
  9. SEROQUEL [Suspect]
     Route: 048
     Dates: start: 20060730, end: 20060101
  10. RISPERDAL [Concomitant]
     Indication: DEPRESSION
  11. RISPERDAL [Concomitant]
     Indication: ANXIETY
  12. GEODON [Concomitant]

REACTIONS (2)
  - DIABETIC COMA [None]
  - TYPE 2 DIABETES MELLITUS [None]
